FAERS Safety Report 22264615 (Version 1)
Quarter: 2023Q2

REPORT INFORMATION
  Report Type: Spontaneous
  Country: US (occurrence: None)
  Receive Date: 20230428
  Receipt Date: 20230428
  Transmission Date: 20230721
  Serious: Yes (unspecified)
  Sender: FDA-Public Use
  Company Number: None

PATIENT
  Age: 34 Year
  Sex: Female

DRUGS (2)
  1. VITAMINS [Suspect]
     Active Substance: VITAMINS
     Indication: Fluid replacement
     Dates: start: 20230427, end: 20230427
  2. VITAMINS [Concomitant]
     Active Substance: VITAMINS
     Dates: start: 20230427, end: 20230427

REACTIONS (4)
  - Feeling jittery [None]
  - Palpitations [None]
  - Blood pressure increased [None]
  - Anxiety [None]

NARRATIVE: CASE EVENT DATE: 20230427
